FAERS Safety Report 19632888 (Version 2)
Quarter: 2022Q1

REPORT INFORMATION
  Report Type: Spontaneous
  Country: US (occurrence: US)
  Receive Date: 20210730
  Receipt Date: 20220327
  Transmission Date: 20220423
  Serious: Yes (Other)
  Sender: FDA-Public Use
  Company Number: US-BEH-2021134154

PATIENT
  Age: 18 Year
  Sex: Male

DRUGS (1)
  1. HIZENTRA [Suspect]
     Active Substance: HUMAN IMMUNOGLOBULIN G
     Indication: CTLA4 deficiency
     Route: 058

REACTIONS (4)
  - Cavernous sinus thrombosis [Unknown]
  - Headache [Unknown]
  - Paraesthesia [Unknown]
  - Asthenia [Unknown]
